FAERS Safety Report 21362224 (Version 1)
Quarter: 2022Q3

REPORT INFORMATION
  Report Type: Other
  Country: DE (occurrence: DE)
  Receive Date: 20220922
  Receipt Date: 20220922
  Transmission Date: 20221027
  Serious: Yes (Hospitalization)
  Sender: FDA-Public Use
  Company Number: DE-ADRED-05783-01

PATIENT
  Age: 61 Year
  Sex: Female
  Weight: 80 kg

DRUGS (6)
  1. QUETIAPINE FUMARATE [Suspect]
     Active Substance: QUETIAPINE FUMARATE
     Indication: Product used for unknown indication
     Dosage: 50 MILLIGRAM, QD, (50 MG, 0-0-1-0)
     Route: 048
  2. QUETIAPINE FUMARATE [Suspect]
     Active Substance: QUETIAPINE FUMARATE
     Dosage: 25 MILLIGRAM, QD, (25 MG, 0-0-1-0)
     Route: 048
  3. SERTRALINE HYDROCHLORIDE [Suspect]
     Active Substance: SERTRALINE HYDROCHLORIDE
     Indication: Product used for unknown indication
     Dosage: 50 MILLIGRAM, QD, (50 MG, 1-0-0-0)
     Route: 048
  4. TRAZODONE HYDROCHLORIDE [Suspect]
     Active Substance: TRAZODONE HYDROCHLORIDE
     Indication: Product used for unknown indication
     Dosage: 100 MILLIGRAM, QD, (100 MG, 0-0-1-0)
     Route: 048
  5. LEVOTHYROXINE [Concomitant]
     Active Substance: LEVOTHYROXINE
     Indication: Product used for unknown indication
     Dosage: 125 MICROGRAM, QD, (125 MCG, 1-0-0-0)
     Route: 048
  6. VITAMIN D [Concomitant]
     Active Substance: VITAMIN D NOS
     Indication: Product used for unknown indication
     Dosage: 1000 INTERNATIONAL UNIT, (1000 IE, SATURDAYS)
     Route: 048

REACTIONS (6)
  - Hypoaesthesia [Unknown]
  - Hypotension [Unknown]
  - Headache [Unknown]
  - Somnolence [Unknown]
  - Dizziness [Unknown]
  - Hyponatraemia [Unknown]
